FAERS Safety Report 5287906-9 (Version None)
Quarter: 2007Q2

REPORT INFORMATION
  Report Type: 
  Country: None (occurrence: None)
  Receive Date: 20070405
  Receipt Date: 20070326
  Transmission Date: 20071010
  Serious: Yes (Other)
  Sender: FDA-Public Use
  Company Number: US-JNJFOC-20070306220

PATIENT
  Sex: Female
  Weight: 73.48 kg

DRUGS (1)
  1. CONCERTA [Suspect]
     Indication: ATTENTION DEFICIT/HYPERACTIVITY DISORDER
     Route: 048

REACTIONS (6)
  - AFFECT LABILITY [None]
  - BLOOD PRESSURE INCREASED [None]
  - FEAR [None]
  - THINKING ABNORMAL [None]
  - TONIC CLONIC MOVEMENTS [None]
  - WEIGHT INCREASED [None]
